FAERS Safety Report 9503095 (Version 1)
Quarter: 2013Q3

REPORT INFORMATION
  Report Type: Spontaneous
  Country: US (occurrence: US)
  Receive Date: 20130906
  Receipt Date: 20130906
  Transmission Date: 20140515
  Serious: Yes (Life-Threatening, Other)
  Sender: FDA-Public Use
  Company Number: CHPA2013US013682

PATIENT
  Age: 76 Year
  Sex: Female

DRUGS (6)
  1. ASCRIPTIN BUFFERED MAX STRENGTH CAPLETS [Suspect]
     Indication: HEADACHE
     Dosage: 2 DF, TID
     Route: 048
  2. ASCRIPTIN BUFFERED MAX STRENGTH CAPLETS [Suspect]
     Indication: ARTHRITIS
     Dosage: 2-4 DF, QD
     Route: 048
  3. ASCRIPTIN BUFFERED MAX STRENGTH CAPLETS [Suspect]
     Indication: MUSCULOSKELETAL DISCOMFORT
  4. ASCRIPTIN BUFFERED REG STRENGTH TABLETS [Suspect]
     Indication: HEADACHE
     Dosage: 2 DF, 2-3 TIMES PER DAY
     Route: 048
  5. ASCRIPTIN BUFFERED REG STRENGTH TABLETS [Suspect]
     Indication: ARTHRITIS
  6. ANTIGLAUCOMA PREPARATIONS AND MIOTICS [Concomitant]
     Indication: PROPHYLAXIS
     Dosage: 1 GTT, QHS

REACTIONS (7)
  - Feeling abnormal [Unknown]
  - Morton^s neuralgia [Unknown]
  - Hypertension [Not Recovered/Not Resolved]
  - Headache [Recovered/Resolved]
  - Pain [Not Recovered/Not Resolved]
  - Visual impairment [Unknown]
  - Musculoskeletal discomfort [Unknown]
